FAERS Safety Report 8335274-8 (Version None)
Quarter: 2012Q2

REPORT INFORMATION
  Report Type: 
  Country: None (occurrence: None)
  Receive Date: 20120503
  Receipt Date: 20120425
  Transmission Date: 20120825
  Serious: No
  Sender: FDA-Public Use
  Company Number: US-BAYER-2012-043014

PATIENT
  Age: 24 Year
  Sex: Female
  Weight: 116 kg

DRUGS (3)
  1. NAPROXEN SODIUM [Suspect]
     Indication: HEADACHE
     Dosage: 2 DF, PRN
     Route: 048
     Dates: start: 20120401
  2. EXCEDRIN [ACETYLSALICYLIC ACID,CAFFEINE,PARACETAMOL] [Concomitant]
  3. TYLENOL ARTHRITIS [Concomitant]

REACTIONS (1)
  - HEADACHE [None]
